FAERS Safety Report 24212230 (Version 4)
Quarter: 2024Q4

REPORT INFORMATION
  Report Type: Spontaneous
  Country: JP (occurrence: JP)
  Receive Date: 20240815
  Receipt Date: 20241104
  Transmission Date: 20250115
  Serious: Yes (Hospitalization, Other)
  Sender: AMGEN
  Company Number: JP-ONO-2024JP016572

PATIENT
  Age: 8 Decade
  Sex: Female
  Weight: 36 kg

DRUGS (17)
  1. KYPROLIS [Suspect]
     Active Substance: CARFILZOMIB
     Indication: Plasma cell myeloma
     Dosage: 24 MG
     Route: 041
     Dates: start: 20240703, end: 20240704
  2. KYPROLIS [Suspect]
     Active Substance: CARFILZOMIB
     Dosage: 67 MG
     Route: 040
     Dates: start: 20240710, end: 20240710
  3. DARATUMUMAB [Suspect]
     Active Substance: DARATUMUMAB
     Indication: Plasma cell myeloma
     Dosage: 1800 MG
     Route: 058
     Dates: start: 20240703, end: 20240710
  4. DEXAMETHASONE [Concomitant]
     Active Substance: DEXAMETHASONE
     Indication: Plasma cell myeloma
     Dosage: UNK
     Route: 065
     Dates: start: 20240703
  5. SULFAMETHOXAZOLE\TRIMETHOPRIM [Concomitant]
     Active Substance: SULFAMETHOXAZOLE\TRIMETHOPRIM
     Indication: Prophylaxis
     Dosage: UNK UNK, QD
     Route: 048
     Dates: end: 20240715
  6. LEVOTHYROXINE SODIUM [Concomitant]
     Active Substance: LEVOTHYROXINE SODIUM
     Dosage: 50 UG, EVERYDAY
     Route: 048
  7. METGLUCO [Concomitant]
     Active Substance: METFORMIN HYDROCHLORIDE
     Dosage: 500 MG, Q12H
     Route: 048
  8. LANSOPRAZOLE [Concomitant]
     Active Substance: LANSOPRAZOLE
     Indication: Prophylaxis
     Dosage: 15 MG, EVERYDAY
     Route: 048
     Dates: end: 20240704
  9. TENELIGLIPTIN HYDROBROMIDE HYDRATE [Concomitant]
     Active Substance: TENELIGLIPTIN HYDROBROMIDE HYDRATE
     Dosage: 20 MG, EVERYDAY
     Route: 048
  10. ICOSAPENT ETHYL [Concomitant]
     Active Substance: ICOSAPENT ETHYL
     Dosage: 900 MG, Q12H
     Route: 048
     Dates: end: 20240726
  11. VIVIANT [Concomitant]
     Active Substance: BAZEDOXIFENE
     Dosage: 20 MG, EVERYDAY
     Route: 048
     Dates: end: 20240721
  12. ACYCLOVIR [Concomitant]
     Active Substance: ACYCLOVIR
     Indication: Prophylaxis
     Dosage: 200 MG, EVERYDAY
     Route: 048
     Dates: end: 20240731
  13. FEXOFENADINE HYDROCHLORIDE [Concomitant]
     Active Substance: FEXOFENADINE HYDROCHLORIDE
     Dosage: 60 MG, Q12H
     Route: 048
     Dates: end: 20240730
  14. ELDECALCITOL [Concomitant]
     Active Substance: ELDECALCITOL
     Dosage: 0.75 UG, EVERYDAY
     Route: 048
     Dates: end: 20240722
  15. PEMAFIBRATE [Concomitant]
     Active Substance: PEMAFIBRATE
     Dosage: 0.1 MG, Q12H
     Route: 048
     Dates: end: 20240716
  16. CRESTOR [Concomitant]
     Active Substance: ROSUVASTATIN CALCIUM
     Dosage: 2.5 MG, EVERYDAY
     Route: 048
     Dates: end: 20240725
  17. VONOPRAZAN FUMARATE [Concomitant]
     Active Substance: VONOPRAZAN FUMARATE
     Indication: Prophylaxis
     Dosage: 10 MG, EVERYDAY
     Route: 048
     Dates: start: 20240703, end: 20240717

REACTIONS (3)
  - Pancytopenia [Not Recovered/Not Resolved]
  - Pneumonia [Recovering/Resolving]
  - Pyrexia [Unknown]

NARRATIVE: CASE EVENT DATE: 20240710
